FAERS Safety Report 23539796 (Version 3)
Quarter: 2025Q3

REPORT INFORMATION
  Report Type: Report from Study
  Country: US (occurrence: US)
  Receive Date: 20240219
  Receipt Date: 20250717
  Transmission Date: 20251021
  Serious: Yes (Other)
  Sender: JAZZ
  Company Number: US-JAZZ-2022-US-016256

PATIENT
  Sex: Female

DRUGS (66)
  1. XYREM [Suspect]
     Active Substance: SODIUM OXYBATE
     Indication: Narcolepsy
  2. XYREM [Suspect]
     Active Substance: SODIUM OXYBATE
     Indication: Cataplexy
  3. XYREM [Suspect]
     Active Substance: SODIUM OXYBATE
     Indication: Somnolence
  4. SPIRONOLACTONE [Concomitant]
     Active Substance: SPIRONOLACTONE
  5. ALDARA [Concomitant]
     Active Substance: IMIQUIMOD
  6. DIETARY SUPPLEMENT\HERBALS [Concomitant]
     Active Substance: DIETARY SUPPLEMENT\HERBALS
  7. MOBIC [Concomitant]
     Active Substance: MELOXICAM
  8. TRI-LO-SPRINTEC [Concomitant]
     Active Substance: ETHINYL ESTRADIOL\NORGESTIMATE
  9. PROBIOTICS NOS [Concomitant]
     Active Substance: PROBIOTICS NOS
  10. ZOLOFT [Concomitant]
     Active Substance: SERTRALINE HYDROCHLORIDE
  11. CLINDAMYCIN PHOSPHATE [Concomitant]
     Active Substance: CLINDAMYCIN PHOSPHATE
  12. EPINEPHRINE [Concomitant]
     Active Substance: EPINEPHRINE
  13. ALLEGRA [Concomitant]
     Active Substance: FEXOFENADINE HYDROCHLORIDE
  14. ALLEGRA [Concomitant]
     Active Substance: FEXOFENADINE HYDROCHLORIDE
  15. ALLEGRA [Concomitant]
     Active Substance: FEXOFENADINE HYDROCHLORIDE
  16. ALLEGRA [Concomitant]
     Active Substance: FEXOFENADINE HYDROCHLORIDE
  17. ALLEGRA [Concomitant]
     Active Substance: FEXOFENADINE HYDROCHLORIDE
  18. ALLEGRA [Concomitant]
     Active Substance: FEXOFENADINE HYDROCHLORIDE
  19. ALLEGRA [Concomitant]
     Active Substance: FEXOFENADINE HYDROCHLORIDE
  20. ALLEGRA [Concomitant]
     Active Substance: FEXOFENADINE HYDROCHLORIDE
  21. MOMETASONE FUROATE [Concomitant]
     Active Substance: MOMETASONE FUROATE
  22. CLARITIN-D NOS [Concomitant]
     Active Substance: LORATADINE\PSEUDOEPHEDRINE SULFATE
     Indication: Hypersensitivity
  23. CLARITIN-D NOS [Concomitant]
     Active Substance: LORATADINE\PSEUDOEPHEDRINE SULFATE
  24. CLARITIN-D NOS [Concomitant]
     Active Substance: LORATADINE\PSEUDOEPHEDRINE SULFATE
  25. CLARITIN-D NOS [Concomitant]
     Active Substance: LORATADINE\PSEUDOEPHEDRINE SULFATE
  26. CLARITIN-D NOS [Concomitant]
     Active Substance: LORATADINE\PSEUDOEPHEDRINE SULFATE
  27. CLARITIN-D NOS [Concomitant]
     Active Substance: LORATADINE\PSEUDOEPHEDRINE SULFATE
  28. MAGNESIUM [Concomitant]
     Active Substance: MAGNESIUM
  29. MAGNESIUM [Concomitant]
     Active Substance: MAGNESIUM
  30. MAGNESIUM [Concomitant]
     Active Substance: MAGNESIUM
  31. MAGNESIUM [Concomitant]
     Active Substance: MAGNESIUM
  32. MAGNESIUM [Concomitant]
     Active Substance: MAGNESIUM
  33. MAGNESIUM [Concomitant]
     Active Substance: MAGNESIUM
  34. MAGNESIUM [Concomitant]
     Active Substance: MAGNESIUM
  35. MAGNESIUM [Concomitant]
     Active Substance: MAGNESIUM
  36. GLUCOPHAGE XR [Concomitant]
     Active Substance: METFORMIN HYDROCHLORIDE
  37. MOMETASONE FUROATE [Concomitant]
     Active Substance: MOMETASONE FUROATE
     Dates: start: 20220525, end: 20221212
  38. SINGULAIR [Concomitant]
     Active Substance: MONTELUKAST SODIUM
  39. MINERALS\VITAMINS [Concomitant]
     Active Substance: MINERALS\VITAMINS
  40. MINERALS\VITAMINS [Concomitant]
     Active Substance: MINERALS\VITAMINS
  41. MINERALS\VITAMINS [Concomitant]
     Active Substance: MINERALS\VITAMINS
  42. MINERALS\VITAMINS [Concomitant]
     Active Substance: MINERALS\VITAMINS
  43. MINERALS\VITAMINS [Concomitant]
     Active Substance: MINERALS\VITAMINS
  44. MINERALS\VITAMINS [Concomitant]
     Active Substance: MINERALS\VITAMINS
  45. MINERALS\VITAMINS [Concomitant]
     Active Substance: MINERALS\VITAMINS
  46. MINERALS\VITAMINS [Concomitant]
     Active Substance: MINERALS\VITAMINS
  47. MUPIROCIN CALCIUM [Concomitant]
     Active Substance: MUPIROCIN CALCIUM
     Dates: start: 20211126, end: 20221212
  48. ORTHO TRI CYCLEN LO [Concomitant]
     Active Substance: ETHINYL ESTRADIOL\NORGESTIMATE
     Dates: start: 20211220, end: 20221129
  49. PRILOSEC [Concomitant]
     Active Substance: OMEPRAZOLE MAGNESIUM
  50. MIRALAX [Concomitant]
     Active Substance: POLYETHYLENE GLYCOL 3350
  51. MIRALAX [Concomitant]
     Active Substance: POLYETHYLENE GLYCOL 3350
  52. MIRALAX [Concomitant]
     Active Substance: POLYETHYLENE GLYCOL 3350
  53. MIRALAX [Concomitant]
     Active Substance: POLYETHYLENE GLYCOL 3350
  54. MIRALAX [Concomitant]
     Active Substance: POLYETHYLENE GLYCOL 3350
  55. MIRALAX [Concomitant]
     Active Substance: POLYETHYLENE GLYCOL 3350
  56. MIRALAX [Concomitant]
     Active Substance: POLYETHYLENE GLYCOL 3350
  57. MIRALAX [Concomitant]
     Active Substance: POLYETHYLENE GLYCOL 3350
  58. FOLIC ACID [Concomitant]
     Active Substance: FOLIC ACID
  59. BACLOFEN [Concomitant]
     Active Substance: BACLOFEN
  60. LAMICTAL [Concomitant]
     Active Substance: LAMOTRIGINE
  61. ELDERBERRY EXTRACT [Concomitant]
  62. FLUTICASONE PROPIONATE [Concomitant]
     Active Substance: FLUTICASONE PROPIONATE
  63. MELOXICAM [Concomitant]
     Active Substance: MELOXICAM
  64. MONTELUKAST SODIUM [Concomitant]
     Active Substance: MONTELUKAST SODIUM
  65. NAYZILAM [Concomitant]
     Active Substance: MIDAZOLAM
  66. ESOMEPRAZOLE MAGNESIUM [Concomitant]
     Active Substance: ESOMEPRAZOLE MAGNESIUM
     Indication: Product used for unknown indication

REACTIONS (9)
  - Epilepsy [Unknown]
  - Influenza [Unknown]
  - Abnormal dreams [Unknown]
  - Anxiety [Unknown]
  - Depression [Unknown]
  - Weight decreased [Unknown]
  - Hyperhidrosis [Unknown]
  - Product dose omission issue [Unknown]
  - Product administration interrupted [Unknown]
